FAERS Safety Report 25859314 (Version 1)
Quarter: 2025Q3

REPORT INFORMATION
  Report Type: Report from Study
  Country: CA (occurrence: CA)
  Receive Date: 20250929
  Receipt Date: 20250929
  Transmission Date: 20251021
  Serious: Yes (Other)
  Sender: TEVA
  Company Number: CA-TEVA-VS-3376424

PATIENT
  Age: 72 Year
  Sex: Male

DRUGS (1)
  1. COPAXONE [Suspect]
     Active Substance: GLATIRAMER ACETATE
     Indication: Multiple sclerosis
     Route: 058

REACTIONS (7)
  - Throat tightness [Recovering/Resolving]
  - Gastrooesophageal reflux disease [Recovering/Resolving]
  - Hot flush [Recovering/Resolving]
  - Tremor [Recovered/Resolved]
  - Chest pain [Recovering/Resolving]
  - Cough [Recovering/Resolving]
  - Asthenia [Recovering/Resolving]

NARRATIVE: CASE EVENT DATE: 20250901
